FAERS Safety Report 15249825 (Version 1)
Quarter: 2018Q3

REPORT INFORMATION
  Report Type: Spontaneous
  Country: MZ (occurrence: MZ)
  Receive Date: 20180807
  Receipt Date: 20180807
  Transmission Date: 20181010
  Serious: Yes (Hospitalization)
  Sender: FDA-Public Use
  Company Number: MZ-LANNETT COMPANY, INC.-MZ-2018LAN000892

PATIENT
  Age: 46 Year
  Sex: Male

DRUGS (3)
  1. LAMIVUDINE. [Suspect]
     Active Substance: LAMIVUDINE
     Indication: HIV INFECTION
     Dosage: 300 MG, UNK
     Route: 065
  2. TENOFOVIR [Suspect]
     Active Substance: TENOFOVIR
     Indication: HIV INFECTION
     Dosage: 300 MG, UNK
     Route: 065
  3. EFAVIRENZ. [Suspect]
     Active Substance: EFAVIRENZ
     Indication: HIV INFECTION
     Dosage: 300 MG, UNK
     Route: 065

REACTIONS (1)
  - Gynaecomastia [Recovered/Resolved]
